FAERS Safety Report 20967482 (Version 8)
Quarter: 2022Q4

REPORT INFORMATION
  Report Type: Spontaneous
  Country: US (occurrence: US)
  Receive Date: 20220616
  Receipt Date: 20221115
  Transmission Date: 20230112
  Serious: Yes (Hospitalization)
  Sender: FDA-Public Use
  Company Number: US-PFIZER INC-202200824777

PATIENT
  Age: 59 Year
  Sex: Male

DRUGS (4)
  1. DEXTROSE [Suspect]
     Active Substance: DEXTROSE
     Dosage: UNK
  2. DEXTROSE [Suspect]
     Active Substance: DEXTROSE
     Dosage: 50 ML
  3. KENALOG [Suspect]
     Active Substance: TRIAMCINOLONE ACETONIDE
     Dosage: 10 MG/ML
  4. WATER [Suspect]
     Active Substance: WATER
     Dosage: 1000 ML

REACTIONS (4)
  - Candida infection [Unknown]
  - Hypersensitivity [Unknown]
  - Periarthritis [Unknown]
  - Joint swelling [Unknown]

NARRATIVE: CASE EVENT DATE: 20220202
